FAERS Safety Report 7335616-6 (Version None)
Quarter: 2011Q1

REPORT INFORMATION
  Report Type: 
  Country: None (occurrence: None)
  Receive Date: 20110307
  Receipt Date: 20110228
  Transmission Date: 20110831
  Serious: Yes (Hospitalization)
  Sender: FDA-Public Use
  Company Number: A0858778A

PATIENT
  Sex: Male
  Weight: 190.8 kg

DRUGS (2)
  1. AVANDIA [Suspect]
     Dosage: 4MG PER DAY
     Route: 048
     Dates: start: 20081208
  2. AVANDAMET [Suspect]
     Route: 048
     Dates: start: 20040301, end: 20040401

REACTIONS (5)
  - COAGULOPATHY [None]
  - CARDIAC FAILURE CONGESTIVE [None]
  - BLOOD CHOLESTEROL INCREASED [None]
  - HEART RATE IRREGULAR [None]
  - PULMONARY EMBOLISM [None]
